FAERS Safety Report 11891884 (Version 1)
Quarter: 2016Q1

REPORT INFORMATION
  Report Type: Spontaneous
  Country: US (occurrence: None)
  Receive Date: 20160105
  Receipt Date: 20160105
  Transmission Date: 20160526
  Serious: Yes (Life-Threatening, Hospitalization, Disabling)
  Sender: FDA-Public Use
  Company Number: None

PATIENT
  Age: 42 Year
  Sex: Male
  Weight: 72.58 kg

DRUGS (5)
  1. CIPROFLOXACIN HCL [Suspect]
     Active Substance: CIPROFLOXACIN HYDROCHLORIDE
     Indication: URINARY TRACT INFECTION
     Route: 048
     Dates: start: 20150624, end: 20150803
  2. ATORVASTATIN [Concomitant]
     Active Substance: ATORVASTATIN
  3. ASPIRIN. [Concomitant]
     Active Substance: ASPIRIN
  4. CIPROFLOXACIN HCL [Suspect]
     Active Substance: CIPROFLOXACIN HYDROCHLORIDE
     Indication: PROSTATITIS
     Route: 048
     Dates: start: 20150624, end: 20150803
  5. IBUPROFEN. [Concomitant]
     Active Substance: IBUPROFEN

REACTIONS (14)
  - Palpitations [None]
  - Tachycardia [None]
  - Angina pectoris [None]
  - Presyncope [None]
  - Paraesthesia [None]
  - Hypoaesthesia [None]
  - Burning sensation [None]
  - Cerebrovascular accident [None]
  - Sensory disturbance [None]
  - Muscle twitching [None]
  - Muscular weakness [None]
  - Insomnia [None]
  - Haematocrit increased [None]
  - Dyspnoea [None]

NARRATIVE: CASE EVENT DATE: 20150812
